FAERS Safety Report 7625823 (Version 2)
Quarter: 2012Q4

REPORT INFORMATION
  Report Type: 
  Country: FR (occurrence: FR)
  Receive Date: 20101012
  Receipt Date: 20120906
  Transmission Date: 20130627
  Serious: Yes (Hospitalization, Other)
  Sender: FDA-Public Use
  Company Number: FR-MERCK-1010FRA00025

PATIENT
  Age: 54 None

DRUGS (10)
  1. EZETIMIBE [Suspect]
     Indication: DYSLIPIDAEMIA
     Dosage: 10 mg, qd
     Route: 048
  2. COLCHICINE [Suspect]
     Indication: GOUT
     Dosage: 1 DF, qd
     Route: 048
     Dates: start: 201004, end: 201004
  3. COLCHICINE [Suspect]
     Dosage: 1 DF, qd
     Route: 048
     Dates: start: 20100426, end: 20100528
  4. ZYLORIC [Suspect]
     Indication: GOUT
     Dosage: 300 mg, qd
     Route: 048
     Dates: start: 20100519, end: 20100528
  5. LESCOL [Suspect]
     Dosage: 20 mg, qd
     Route: 048
  6. CARDENSIEL [Concomitant]
     Dosage: 7.5 mg, qd
  7. LASILIX [Concomitant]
     Dosage: 120 mg, qd
  8. KARDEGIC [Concomitant]
     Dosage: 75 mg, qd
  9. PREVISCAN [Concomitant]
     Dosage: 0.5 DF, qd
     Route: 048
  10. LEVOTHYROX [Concomitant]
     Dosage: 25 ?g, qd
     Route: 048

REACTIONS (15)
  - Rhabdomyolysis [Recovered/Resolved]
  - Purpura [Recovered/Resolved]
  - Palmar erythema [Recovered/Resolved]
  - Eyelid oedema [Recovered/Resolved]
  - Drug interaction [Recovered/Resolved]
  - Cardiac failure [None]
  - Skin lesion [None]
  - Hepatojugular reflux [None]
  - Hepatomegaly [None]
  - Lymphadenopathy [None]
  - Lividity [None]
  - Areflexia [None]
  - Platelet count decreased [None]
  - Toxic skin eruption [None]
  - International normalised ratio increased [None]
